FAERS Safety Report 7583209-8 (Version None)
Quarter: 2011Q2

REPORT INFORMATION
  Report Type: 
  Country: None (occurrence: None)
  Receive Date: 20110630
  Receipt Date: 20110621
  Transmission Date: 20111010
  Serious: Yes (Hospitalization)
  Sender: FDA-Public Use
  Company Number: SE-ASTRAZENECA-2011SE37448

PATIENT
  Age: 29344 Day
  Sex: Male

DRUGS (10)
  1. ALENDRONATE SODIUM [Concomitant]
  2. ACETAMINOPHEN [Concomitant]
  3. BEHEPAN [Concomitant]
     Dosage: 1 MG/ML
  4. SPIRONOLACTONE [Suspect]
     Indication: ESSENTIAL HYPERTENSION
     Route: 048
  5. METOPROLOL SUCCINATE [Suspect]
     Indication: ESSENTIAL HYPERTENSION
     Route: 048
  6. COZAAR [Suspect]
     Indication: ESSENTIAL HYPERTENSION
     Route: 048
  7. ALLOPURINOL [Concomitant]
  8. FUROSEMIDE [Suspect]
     Indication: ESSENTIAL HYPERTENSION
     Route: 048
  9. WARFARIN SODIUM [Concomitant]
  10. CALCICHEW-D3 [Concomitant]

REACTIONS (1)
  - ORTHOSTATIC HYPOTENSION [None]
